FAERS Safety Report 9857317 (Version 2)
Quarter: 2014Q3

REPORT INFORMATION
  Report Type: Spontaneous
  Country: NO (occurrence: NO)
  Receive Date: 20140130
  Receipt Date: 20140703
  Transmission Date: 20150326
  Serious: Yes (Disabling)
  Sender: FDA-Public Use
  Company Number: PHHY2014NO009914

PATIENT
  Age: 44 Year
  Sex: Male

DRUGS (2)
  1. VOLTAREN [Suspect]
     Active Substance: DICLOFENAC SODIUM
     Indication: PERIARTHRITIS
     Dosage: 50 MG, UNK
     Dates: start: 20091102, end: 20091107
  2. VOLTAREN [Suspect]
     Active Substance: DICLOFENAC SODIUM
     Indication: ROTATOR CUFF SYNDROME
     Dosage: UNK UKN, UNK

REACTIONS (9)
  - Sleep disorder [Unknown]
  - Headache [Unknown]
  - Deafness [Unknown]
  - Abdominal discomfort [Unknown]
  - Oedema peripheral [Unknown]
  - Fluid retention [Unknown]
  - Tinnitus [Unknown]
  - Burning sensation [Unknown]
  - Depression [Unknown]

NARRATIVE: CASE EVENT DATE: 200911
